FAERS Safety Report 24021086 (Version 2)
Quarter: 2024Q3

REPORT INFORMATION
  Report Type: Spontaneous
  Country: US (occurrence: US)
  Receive Date: 20240627
  Receipt Date: 20240903
  Transmission Date: 20241016
  Serious: Yes (Other)
  Sender: PFIZER
  Company Number: US-PFIZER INC-PV202400084525

PATIENT
  Age: 40 Year
  Sex: Female

DRUGS (2)
  1. XELJANZ [Suspect]
     Active Substance: TOFACITINIB CITRATE
     Indication: Colitis ulcerative
     Dosage: 5 MG, 2X/DAY
     Route: 048
     Dates: start: 20240323
  2. XELJANZ [Suspect]
     Active Substance: TOFACITINIB CITRATE
     Indication: Prostate cancer
     Dosage: 5 MG, 2X/DAY
     Route: 048

REACTIONS (3)
  - Haematochezia [Recovered/Resolved]
  - Abnormal faeces [Recovering/Resolving]
  - Constipation [Recovering/Resolving]

NARRATIVE: CASE EVENT DATE: 20240701
